FAERS Safety Report 25362850 (Version 1)
Quarter: 2025Q2

REPORT INFORMATION
  Report Type: Spontaneous
  Country: US (occurrence: None)
  Receive Date: 20250526
  Receipt Date: 20250526
  Transmission Date: 20250717
  Serious: Yes (Hospitalization)
  Sender: FDA-CTU
  Company Number: None

PATIENT
  Sex: Male

DRUGS (9)
  1. PULMOZYME [Suspect]
     Active Substance: DORNASE ALFA
     Indication: Bacterial disease carrier
     Route: 055
     Dates: start: 20241210
  2. IRON [Concomitant]
     Active Substance: IRON
  3. NOVOLOG [Concomitant]
     Active Substance: INSULIN ASPART
  4. OXYCODONE AND ACETAMINOPHEN [Concomitant]
     Active Substance: ACETAMINOPHEN\OXYCODONE HYDROCHLORIDE
  5. PANTOPRAZOLE [Concomitant]
     Active Substance: PANTOPRAZOLE
  6. PULMOZYME SOL [Concomitant]
  7. URSODIOL [Concomitant]
     Active Substance: URSODIOL
  8. VITAMIN A [Concomitant]
     Active Substance: VITAMIN A
  9. WELLBUTRIN [Concomitant]
     Active Substance: BUPROPION HYDROCHLORIDE

REACTIONS (4)
  - Chest pain [None]
  - Haemoptysis [None]
  - Therapy interrupted [None]
  - Sleep disorder [None]
